FAERS Safety Report 5411141-4 (Version None)
Quarter: 2007Q3

REPORT INFORMATION
  Report Type: 
  Country: None (occurrence: None)
  Receive Date: 20070808
  Receipt Date: 20070723
  Transmission Date: 20080115
  Serious: Yes (Other)
  Sender: FDA-Public Use
  Company Number: 159141ISR

PATIENT
  Age: 16 Year
  Sex: Male

DRUGS (4)
  1. CARBAMAZEPINE [Suspect]
     Indication: EPILEPSY
     Dosage: 400 MG (400 MG,1 IN 1 D)
  2. VALPROIC ACID [Suspect]
     Indication: EPILEPSY
     Dosage: 1600 MG (1600 MG,1 IN 1 D)
  3. RISPERIDONE [Suspect]
     Indication: ABNORMAL BEHAVIOUR
     Dosage: 2 GRAM (2 GRAM, 1 IN 1 D)
  4. RISPERIDONE [Suspect]
     Indication: AUTISM
     Dosage: 2 GRAM (2 GRAM, 1 IN 1 D)

REACTIONS (2)
  - DRUG INTERACTION [None]
  - OEDEMA PERIPHERAL [None]
